FAERS Safety Report 21976787 (Version 1)
Quarter: 2023Q1

REPORT INFORMATION
  Report Type: Spontaneous
  Country: US (occurrence: US)
  Receive Date: 20230210
  Receipt Date: 20230210
  Transmission Date: 20230417
  Serious: No
  Sender: FDA-Public Use
  Company Number: US-ABBVIE-4260999

PATIENT
  Sex: Female

DRUGS (1)
  1. SYNTHROID [Suspect]
     Active Substance: LEVOTHYROXINE SODIUM
     Indication: Product used for unknown indication
     Route: 048

REACTIONS (6)
  - Weight increased [Unknown]
  - Arrhythmia [Unknown]
  - Feeling abnormal [Unknown]
  - Sinusitis [Unknown]
  - Weight decreased [Unknown]
  - Nasopharyngitis [Unknown]
